FAERS Safety Report 21368775 (Version 1)
Quarter: 2022Q3

REPORT INFORMATION
  Report Type: Spontaneous
  Country: FI (occurrence: FI)
  Receive Date: 20220923
  Receipt Date: 20220923
  Transmission Date: 20221026
  Serious: Yes (Hospitalization)
  Sender: FDA-Public Use
  Company Number: None

PATIENT
  Age: 39 Year
  Sex: Male

DRUGS (6)
  1. STELARA [Suspect]
     Active Substance: USTEKINUMAB
     Indication: Psoriasis
     Route: 058
     Dates: start: 20220330
  2. ARIPIPRAZOLE [Concomitant]
     Active Substance: ARIPIPRAZOLE
     Dosage: TABLET (UNCOATED, ORAL)
     Route: 048
     Dates: start: 20190913
  3. ALPRAZOLAM [Concomitant]
     Active Substance: ALPRAZOLAM
     Dosage: 1,MG,DAILY
     Route: 048
     Dates: start: 20181103
  4. TESTOSTERONE [Concomitant]
     Active Substance: TESTOSTERONE
     Dates: start: 20170403
  5. ZOLPIDEM-RATIOPHARM [Concomitant]
     Dosage: 10,MG,DAILY
     Route: 048
     Dates: start: 20070118
  6. PANADOL FORTE [CAFFEINE;PARACETAMOL] [Concomitant]
     Route: 048
     Dates: start: 20180306

REACTIONS (1)
  - Peritonsillar abscess [Recovered/Resolved]

NARRATIVE: CASE EVENT DATE: 20220715
